FAERS Safety Report 21909843 (Version 1)
Quarter: 2023Q1

REPORT INFORMATION
  Report Type: Spontaneous
  Country: GB (occurrence: GB)
  Receive Date: 20230125
  Receipt Date: 20230125
  Transmission Date: 20230418
  Serious: Yes (Life-Threatening, Hospitalization)
  Sender: FDA-Public Use
  Company Number: GB-MHRA-MED-202301200824065710-YVHDP

PATIENT
  Age: 28 Year
  Sex: Male

DRUGS (2)
  1. OLANZAPINE [Suspect]
     Active Substance: OLANZAPINE
     Indication: Psychotic disorder
     Dosage: 300 MG, UNKNOWN
     Route: 030
     Dates: start: 20230103
  2. OLANZAPINE [Suspect]
     Active Substance: OLANZAPINE
     Dosage: 300 MG, UNKNOWN
     Route: 030
     Dates: start: 20230118

REACTIONS (1)
  - Respiratory arrest [Not Recovered/Not Resolved]

NARRATIVE: CASE EVENT DATE: 20230118
